FAERS Safety Report 4443271-8 (Version None)
Quarter: 2004Q3

REPORT INFORMATION
  Report Type: 
  Country: None (occurrence: None)
  Receive Date: 20040908
  Receipt Date: 20040225
  Transmission Date: 20050211
  Serious: Yes (Hospitalization)
  Sender: FDA-Public Use
  Company Number: PHHO2004LB03113

PATIENT
  Age: 25 Year
  Sex: Male
  Weight: 60 kg

DRUGS (4)
  1. ZOLEDRONATE [Suspect]
     Indication: OSTEOPOROSIS
     Dosage: 4 MG, Q3MO
     Route: 042
     Dates: start: 20040210
  2. CALCIUM [Concomitant]
  3. FOLIC ACID [Concomitant]
  4. LI [Concomitant]
     Dosage: 75 MG/KG, QD
     Dates: start: 20010101

REACTIONS (7)
  - ARTHRALGIA [None]
  - DYSPNOEA [None]
  - HYPOAESTHESIA [None]
  - HYPOCALCAEMIA [None]
  - INTESTINAL OBSTRUCTION [None]
  - MUSCLE CRAMP [None]
  - PYREXIA [None]
